FAERS Safety Report 4479570-3 (Version None)
Quarter: 2004Q4

REPORT INFORMATION
  Report Type: 
  Country: None (occurrence: None)
  Receive Date: 20041015
  Receipt Date: 20040929
  Transmission Date: 20050328
  Serious: Yes (Death, Hospitalization)
  Sender: FDA-Public Use
  Company Number: 2004EU001536

PATIENT
  Age: 49 Year
  Sex: Male

DRUGS (6)
  1. PROGRAF [Suspect]
     Indication: LIVER TRANSPLANT
     Dosage: 3.00 MG, BID
  2. BACTRIM [Suspect]
     Dosage: 3.00 DF, WEEKLY, ORAL
     Route: 048
     Dates: start: 20031206, end: 20040630
  3. FENOFIBRATE [Suspect]
     Dosage: 67.00 MG, UID/QD
     Dates: end: 20040705
  4. GANCICLOVIR [Suspect]
     Dates: start: 20040604, end: 20040626
  5. LOXEN(NICARDIPINE HYDROCHLORIDE) [Suspect]
     Dosage: 50.00 MG, UID/QD, ORAL
     Route: 048
     Dates: end: 20040705
  6. ESOMEPRAZOLE(ESOMEPRAZOLE) [Suspect]
     Dosage: 20.00 MG, BID, ORAL
     Route: 048
     Dates: start: 20040705

REACTIONS (7)
  - ANAEMIA [None]
  - CARDIO-RESPIRATORY ARREST [None]
  - CYTOMEGALOVIRUS INFECTION [None]
  - LEUKOPENIA [None]
  - SEPTIC SHOCK [None]
  - THROMBOCYTOPENIA [None]
  - TOXIC EPIDERMAL NECROLYSIS [None]
